FAERS Safety Report 10867248 (Version 1)
Quarter: 2015Q1

REPORT INFORMATION
  Report Type: Report from Study
  Country: DE (occurrence: DE)
  Receive Date: 20150225
  Receipt Date: 20150225
  Transmission Date: 20150721
  Serious: Yes (Hospitalization, Other)
  Sender: FDA-Public Use
  Company Number: DE-ASTRAZENECA-2015SE15934

PATIENT
  Age: 24343 Day
  Sex: Male

DRUGS (11)
  1. ATACAND [Concomitant]
     Active Substance: CANDESARTAN CILEXETIL
     Dates: start: 20150125
  2. VOLTAREN RESINAT [Concomitant]
     Active Substance: DICLOFENAC
     Dates: start: 20150125
  3. TOREM [Concomitant]
     Active Substance: TORSEMIDE
     Dates: start: 20150125
  4. ADALAT [Concomitant]
     Active Substance: NIFEDIPINE
     Dates: start: 20150126
  5. TICAGRELOR [Suspect]
     Active Substance: TICAGRELOR
     Indication: THROMBOSIS PROPHYLAXIS
     Route: 048
     Dates: start: 20150126, end: 20150129
  6. AMLODIPIN [Concomitant]
     Active Substance: AMLODIPINE BESYLATE
     Dates: start: 20150127
  7. SORTIS [Concomitant]
     Active Substance: ATORVASTATIN
     Dates: start: 20150125
  8. ACETYLSALICYLIC ACID [Suspect]
     Active Substance: ASPIRIN
     Indication: THROMBOSIS PROPHYLAXIS
     Route: 048
     Dates: start: 20150126
  9. AZULFIDINE [Concomitant]
     Active Substance: SULFASALAZINE
     Dates: start: 20150125
  10. TILIDIN [Concomitant]
     Active Substance: NALOXONE HYDROCHLORIDE\TILIDINE HYDROCHLORIDE
     Dates: start: 20150125
  11. BRONCHORETARD KPS [Concomitant]
     Dates: start: 20150125

REACTIONS (1)
  - Atrioventricular block second degree [Not Recovered/Not Resolved]

NARRATIVE: CASE EVENT DATE: 20150128
